FAERS Safety Report 5033607-1 (Version None)
Quarter: 2006Q2

REPORT INFORMATION
  Report Type: 
  Country: None (occurrence: None)
  Receive Date: 20060623
  Receipt Date: 20060621
  Transmission Date: 20061013
  Serious: Yes (Life-Threatening, Hospitalization)
  Sender: FDA-Public Use
  Company Number: PHBS2006ES09226

PATIENT
  Age: 78 Year
  Sex: Male

DRUGS (3)
  1. SINTROM UNO [Suspect]
     Indication: ATRIAL FIBRILLATION
     Route: 048
     Dates: start: 20051001, end: 20060503
  2. DIOVAN [Suspect]
     Indication: HYPERTENSION
     Dosage: 80 MG/DAY
  3. TRANXILIUM [Concomitant]
     Indication: INSOMNIA
     Dosage: 10 MG/DAY

REACTIONS (5)
  - CEREBRAL HAEMATOMA [None]
  - CEREBRAL HAEMORRHAGE [None]
  - HEMIPARESIS [None]
  - HYPOAESTHESIA [None]
  - INTERNATIONAL NORMALISED RATIO DECREASED [None]
